FAERS Safety Report 16383857 (Version 1)
Quarter: 2019Q2

REPORT INFORMATION
  Report Type: Spontaneous
  Country: US (occurrence: US)
  Receive Date: 20190603
  Receipt Date: 20190603
  Transmission Date: 20190711
  Serious: No
  Sender: FDA-Public Use
  Company Number: US-GLAXOSMITHKLINE-US2019097876

PATIENT
  Age: 71 Year
  Sex: Male

DRUGS (2)
  1. NICORETTE WHITE ICE MINT [Suspect]
     Active Substance: NICOTINE
     Indication: SMOKING CESSATION THERAPY
     Dosage: 4 MG, 6D
     Route: 048
  2. NICORETTE WHITE ICE MINT [Suspect]
     Active Substance: NICOTINE
     Indication: SMOKING CESSATION THERAPY
     Dosage: 2 MG, 6D
     Route: 048
     Dates: start: 20190425

REACTIONS (5)
  - Incorrect dose administered [Unknown]
  - Withdrawal syndrome [Not Recovered/Not Resolved]
  - Inappropriate schedule of product administration [Unknown]
  - Nervousness [Not Recovered/Not Resolved]
  - Paraesthesia [Not Recovered/Not Resolved]
